FAERS Safety Report 10221801 (Version 1)
Quarter: 2014Q2

REPORT INFORMATION
  Report Type: Spontaneous
  Country: US (occurrence: None)
  Receive Date: 20140606
  Receipt Date: 20140606
  Transmission Date: 20141212
  Serious: Yes (Disabling)
  Sender: FDA-Public Use
  Company Number: None

PATIENT
  Sex: Female
  Weight: 72.58 kg

DRUGS (14)
  1. OXYCODONE/ACETAMINOPHEN [Suspect]
     Indication: PAIN
     Dosage: 1 TABLET
     Route: 048
     Dates: start: 20140222, end: 20140422
  2. OXYCONTIN [Concomitant]
  3. FLUDROCORTISONE [Concomitant]
  4. METOPROLOL ER [Concomitant]
  5. CLONIDINE [Concomitant]
  6. PHENERGAN [Concomitant]
  7. VITAMIN D [Concomitant]
  8. CHLORELLA VULGARIS [Concomitant]
  9. PROBIOTICS [Concomitant]
  10. IRON [Concomitant]
  11. MAGNESIUM [Concomitant]
  12. FOLIC ACID [Concomitant]
  13. OMEGA-3 [Concomitant]
  14. VITAMIN B COMPLEX [Concomitant]

REACTIONS (10)
  - Product substitution issue [None]
  - Product quality issue [None]
  - Malaise [None]
  - Dizziness [None]
  - Heart rate increased [None]
  - Headache [None]
  - Asthenia [None]
  - Pruritus [None]
  - Nausea [None]
  - Pain [None]
